FAERS Safety Report 13120684 (Version 1)
Quarter: 2017Q1

REPORT INFORMATION
  Report Type: Spontaneous
  Country: US (occurrence: US)
  Receive Date: 20170113
  Receipt Date: 20170113
  Transmission Date: 20170428
  Serious: Yes (Other)
  Sender: FDA-Public Use
  Company Number: None

PATIENT
  Age: 70 Year
  Sex: Female
  Weight: 47.25 kg

DRUGS (14)
  1. LAMOTRIGINE. [Concomitant]
     Active Substance: LAMOTRIGINE
  2. NITROFURANTOIN MONO [Suspect]
     Active Substance: NITROFURANTOIN
     Indication: URINARY TRACT INFECTION
     Dosage: ?          QUANTITY:14 CAPSULE(S);?
     Route: 048
     Dates: start: 20170106, end: 20170112
  3. PROAIR HFA [Concomitant]
     Active Substance: ALBUTEROL SULFATE
  4. TRAZODONE [Concomitant]
     Active Substance: TRAZODONE HYDROCHLORIDE
  5. SEROQUEL [Concomitant]
     Active Substance: QUETIAPINE FUMARATE
  6. LEVOTHYROXINE. [Concomitant]
     Active Substance: LEVOTHYROXINE
  7. B-COPLEX [Concomitant]
  8. METFORMIN [Concomitant]
     Active Substance: METFORMIN HYDROCHLORIDE
  9. IBUPROFEN. [Concomitant]
     Active Substance: IBUPROFEN
  10. VITAMIN C [Concomitant]
     Active Substance: ASCORBIC ACID
  11. BELCOMETHASONE [Concomitant]
  12. VENFLAXINE [Concomitant]
  13. LOSATARAN [Concomitant]
  14. FISH OIL [Concomitant]
     Active Substance: FISH OIL

REACTIONS (13)
  - Paraesthesia [None]
  - Cough [None]
  - Rash [None]
  - Eye pain [None]
  - Dyspnoea [None]
  - Gait disturbance [None]
  - Myalgia [None]
  - Dizziness [None]
  - Tremor [None]
  - Diarrhoea [None]
  - Neuropathy peripheral [None]
  - Balance disorder [None]
  - Chest pain [None]

NARRATIVE: CASE EVENT DATE: 20170110
